FAERS Safety Report 8001990-0 (Version None)
Quarter: 2011Q4

REPORT INFORMATION
  Report Type: 
  Country: None (occurrence: None)
  Receive Date: 20111222
  Receipt Date: 20111212
  Transmission Date: 20120403
  Serious: Yes (Hospitalization)
  Sender: FDA-Public Use
  Company Number: NL-ROCHE-1020990

PATIENT

DRUGS (3)
  1. METHYLPREDNISOLONE [Concomitant]
     Indication: PREMEDICATION
     Route: 042
  2. CLEMASTINE FUMARATE [Concomitant]
     Indication: PREMEDICATION
     Route: 042
  3. MABTHERA [Suspect]
     Indication: MYOPATHY
     Route: 042

REACTIONS (3)
  - GASTROENTERITIS [None]
  - CARDIAC FAILURE [None]
  - PYREXIA [None]
